FAERS Safety Report 8518332-4 (Version None)
Quarter: 2012Q3

REPORT INFORMATION
  Report Type: 
  Country: None (occurrence: None)
  Receive Date: 20120718
  Receipt Date: 20120214
  Transmission Date: 20120928
  Serious: No
  Sender: FDA-Public Use
  Company Number: US-BRISTOL-MYERS SQUIBB COMPANY-16376709

PATIENT
  Age: 75 Year
  Sex: Female

DRUGS (3)
  1. PLAVIX [Suspect]
     Route: 048
  2. COUMADIN [Suspect]
     Dosage: 1 DF: 5 MG AND 7.5 MG ALTERNATE DAY
  3. TYLENOL [Concomitant]

REACTIONS (5)
  - MYALGIA [None]
  - DRUG ERUPTION [None]
  - GAIT DISTURBANCE [None]
  - CONTUSION [None]
  - BONE PAIN [None]
